FAERS Safety Report 8905543 (Version 3)
Quarter: 2012Q4

REPORT INFORMATION
  Report Type: 
  Country: IE (occurrence: IE)
  Receive Date: 20121113
  Receipt Date: 20121221
  Transmission Date: 20130627
  Serious: Yes (Hospitalization)
  Sender: FDA-Public Use
  Company Number: IE-PFIZER INC-2012278483

PATIENT
  Age: 8 Month
  Sex: Female

DRUGS (1)
  1. GENOTROPIN [Suspect]
     Dosage: 0.1 mg, 1x/day
     Route: 058
     Dates: start: 201207

REACTIONS (1)
  - Blood glucose decreased [Unknown]
